FAERS Safety Report 21005704 (Version 3)
Quarter: 2022Q3

REPORT INFORMATION
  Report Type: Report from Study
  Country: US (occurrence: US)
  Receive Date: 20220624
  Receipt Date: 20220707
  Transmission Date: 20221027
  Serious: No
  Sender: FDA-Public Use
  Company Number: US-NOVARTISTESTPH-NVSC2022US145543

PATIENT
  Age: 43 Year
  Sex: Female

DRUGS (2)
  1. AIMOVIG [Suspect]
     Active Substance: ERENUMAB-AOOE
     Indication: Migraine
     Dosage: UNK
     Route: 065
  2. KESIMPTA [Suspect]
     Active Substance: OFATUMUMAB
     Indication: Product used for unknown indication
     Dosage: UNK UNK, QW
     Route: 058
     Dates: start: 20220428

REACTIONS (14)
  - Influenza like illness [Unknown]
  - Fatigue [Unknown]
  - Asthenia [Unknown]
  - Insomnia [Unknown]
  - Disturbance in attention [Unknown]
  - Memory impairment [Unknown]
  - Visual impairment [Unknown]
  - Euphoric mood [Unknown]
  - Irritability [Not Recovered/Not Resolved]
  - Dysarthria [Unknown]
  - Migraine [Unknown]
  - Post-traumatic stress disorder [Unknown]
  - Fibromyalgia [Unknown]
  - Drug ineffective [Unknown]
